FAERS Safety Report 12321607 (Version 1)
Quarter: 2016Q2

REPORT INFORMATION
  Report Type: Spontaneous
  Country: US (occurrence: None)
  Receive Date: 20160429
  Receipt Date: 20160429
  Transmission Date: 20160815
  Serious: No
  Sender: FDA-Public Use
  Company Number: None

PATIENT

DRUGS (1)
  1. PRED FORTE GENERIC [Suspect]
     Active Substance: PREDNISOLONE ACETATE

REACTIONS (3)
  - Product substitution issue [None]
  - Condition aggravated [None]
  - Uveitis [None]

NARRATIVE: CASE EVENT DATE: 20110214
